FAERS Safety Report 8838801 (Version 1)
Quarter: 2012Q4

REPORT INFORMATION
  Report Type: 
  Country: CA (occurrence: CA)
  Receive Date: 20121014
  Receipt Date: 20121014
  Transmission Date: 20130627
  Serious: Yes (Other)
  Sender: FDA-Public Use
  Company Number: PHMT2005CA00746

PATIENT
  Sex: Female

DRUGS (6)
  1. SANDOSTATIN LAR [Suspect]
     Indication: ANGIODYSPLASIA
     Dosage: 20 mg, QW4
     Dates: start: 20050519
  2. ACETAMINOPHEN [Concomitant]
  3. ATIVAN [Concomitant]
  4. LASIX [Concomitant]
  5. PANTOLOC ^SOLVAY^ [Concomitant]
  6. SYNTHROID [Concomitant]

REACTIONS (5)
  - Haematochezia [Unknown]
  - Haemoglobin decreased [Unknown]
  - Fatigue [Recovering/Resolving]
  - Hypoaesthesia [Unknown]
  - Skin burning sensation [Unknown]
